FAERS Safety Report 8611626-3 (Version None)
Quarter: 2012Q3

REPORT INFORMATION
  Report Type: 
  Country: None (occurrence: None)
  Receive Date: 20120822
  Receipt Date: 20120814
  Transmission Date: 20120928
  Serious: Yes (Hospitalization)
  Sender: FDA-Public Use
  Company Number: DE-ABBOTT-12P-062-0969008-00

PATIENT
  Age: 61 Year
  Sex: Male
  Weight: 123 kg

DRUGS (1)
  1. ZEMPLAR [Suspect]
     Indication: HYPERPARATHYROIDISM SECONDARY
     Route: 042
     Dates: start: 20100608

REACTIONS (2)
  - DIABETIC RETINOPATHY [None]
  - HOSPITALISATION [None]
